FAERS Safety Report 18851184 (Version 2)
Quarter: 2021Q3

REPORT INFORMATION
  Report Type: Report from Study
  Country: CA (occurrence: CA)
  Receive Date: 20210205
  Receipt Date: 20210727
  Transmission Date: 20211014
  Serious: Yes (Other)
  Sender: FDA-Public Use
  Company Number: CA-JNJFOC-20210145030

PATIENT
  Age: 40 Year
  Sex: Male
  Weight: 85.35 kg

DRUGS (1)
  1. REMICADE [Suspect]
     Active Substance: INFLIXIMAB
     Indication: CROHN^S DISEASE
     Dosage: ON 27?JAN?2021, RECEIVED 86TH 1000 MG INFLIXIMAB INFUSION.
     Route: 042
     Dates: start: 20130204

REACTIONS (2)
  - Hidradenitis [Not Recovered/Not Resolved]
  - Decreased immune responsiveness [Unknown]

NARRATIVE: CASE EVENT DATE: 20200601
